FAERS Safety Report 23178089 (Version 1)
Quarter: 2023Q4

REPORT INFORMATION
  Report Type: Spontaneous
  Country: US (occurrence: None)
  Receive Date: 20231110
  Receipt Date: 20231110
  Transmission Date: 20240110
  Serious: Yes (Hospitalization)
  Sender: FDA-Public Use
  Company Number: None

PATIENT
  Age: 59 Year
  Sex: Female

DRUGS (1)
  1. GILENYA [Suspect]
     Active Substance: FINGOLIMOD HYDROCHLORIDE
     Dosage: FREQUENCY : DAILY;?

REACTIONS (10)
  - Insurance issue [None]
  - Therapy interrupted [None]
  - Hypoaesthesia [None]
  - Band sensation [None]
  - Headache [None]
  - Pain in extremity [None]
  - Cerebral disorder [None]
  - Muscle spasms [None]
  - Syncope [None]
  - Balance disorder [None]

NARRATIVE: CASE EVENT DATE: 20231011
